FAERS Safety Report 15785735 (Version 1)
Quarter: 2019Q1

REPORT INFORMATION
  Report Type: Spontaneous
  Country: US (occurrence: US)
  Receive Date: 20190103
  Receipt Date: 20190103
  Transmission Date: 20190417
  Serious: No
  Sender: FDA-Public Use
  Company Number: US-GLAXOSMITHKLINE-US2018234969

PATIENT
  Age: 65 Year
  Sex: Male

DRUGS (2)
  1. ABREVA [Suspect]
     Active Substance: DOCOSANOL
     Dosage: UNK(5 TIMES)
  2. ABREVA [Suspect]
     Active Substance: DOCOSANOL
     Indication: PAPILLOMA VIRAL INFECTION
     Dosage: UNK(5 TIMES)
     Route: 061

REACTIONS (3)
  - Product use issue [Unknown]
  - Drug effective for unapproved indication [Unknown]
  - Product use in unapproved indication [Unknown]
